FAERS Safety Report 8956915 (Version 2)
Quarter: 2012Q4

REPORT INFORMATION
  Report Type: 
  Country: US (occurrence: US)
  Receive Date: 20121210
  Receipt Date: 20121214
  Transmission Date: 20130627
  Serious: Yes (Death, Hospitalization)
  Sender: FDA-Public Use
  Company Number: US-OTSUKA-US-2012-11761

PATIENT
  Age: 63 Year
  Sex: Male
  Weight: 104.72 kg

DRUGS (9)
  1. SAMSCA [Suspect]
     Indication: HYPONATRAEMIA
     Dosage: 30 Mg milligram(s), UNK
     Route: 048
     Dates: start: 20121124
  2. ASPIRIN [Concomitant]
     Dosage: 81 Mg milligram(s), UNK
  3. DIGOXIN [Concomitant]
     Dosage: 125 mcg, qd
  4. SYNTHYROID [Concomitant]
     Dosage: 50 mcg, UNK
  5. TOPROL XL [Concomitant]
     Dosage: 25 Mg milligram(s), UNK
  6. ZOCOR [Concomitant]
     Dosage: 80 Mg milligram(s), UNK
  7. KAYEXALATE [Concomitant]
     Dosage: 30 Mg milligram(s), qd
     Route: 048
     Dates: start: 20121129
  8. XOPENEX [Concomitant]
     Dosage: 1.25 Mg milligram(s), tid
  9. JANUVIA [Concomitant]
     Dosage: 59 Mg milligram(s), UNK

REACTIONS (4)
  - Cardiac failure [Fatal]
  - Blood potassium increased [None]
  - Weight decreased [None]
  - Blood sodium decreased [None]
